FAERS Safety Report 12896703 (Version 1)
Quarter: 2016Q4

REPORT INFORMATION
  Report Type: Report from Study
  Country: AU (occurrence: AU)
  Receive Date: 20161031
  Receipt Date: 20161031
  Transmission Date: 20170207
  Serious: Yes (Other)
  Sender: FDA-Public Use
  Company Number: AU-GLAXOSMITHKLINE-AU2016159554

PATIENT
  Age: 58 Year
  Sex: Female

DRUGS (2)
  1. LEVETIRACETAM. [Concomitant]
     Active Substance: LEVETIRACETAM
     Indication: EPILEPSY
  2. LAMOTRIGINE. [Suspect]
     Active Substance: LAMOTRIGINE
     Indication: EPILEPSY
     Dosage: UNK

REACTIONS (5)
  - Hallucination, auditory [Recovered/Resolved]
  - Disturbance in social behaviour [Recovered/Resolved]
  - Persecutory delusion [Recovered/Resolved]
  - Thinking abnormal [Recovered/Resolved]
  - Psychotic disorder [Recovered/Resolved]
